FAERS Safety Report 4873047-9 (Version None)
Quarter: 2005Q4

REPORT INFORMATION
  Report Type: 
  Country: None (occurrence: None)
  Receive Date: 20051201
  Receipt Date: 20050815
  Transmission Date: 20060501
  Serious: No
  Sender: FDA-Public Use
  Company Number: 2005PV001229

PATIENT
  Age: 57 Year
  Sex: Female
  Weight: 86.1834 kg

DRUGS (5)
  1. BYETTA [Suspect]
     Indication: DIABETES MELLITUS NON-INSULIN-DEPENDENT
     Dosage: 5 MCG; BID; SC
     Route: 058
     Dates: start: 20050812
  2. ACTOS [Concomitant]
  3. WELCHOL [Concomitant]
  4. TRICOR [Concomitant]
  5. SYNTHROID [Concomitant]

REACTIONS (3)
  - HEADACHE [None]
  - NAUSEA [None]
  - OCULAR HYPERAEMIA [None]
